FAERS Safety Report 4490361-X (Version None)
Quarter: 2004Q4

REPORT INFORMATION
  Report Type: 
  Country: None (occurrence: None)
  Receive Date: 20041029
  Receipt Date: 20041015
  Transmission Date: 20050328
  Serious: Yes (Life-Threatening, Hospitalization)
  Sender: FDA-Public Use
  Company Number: 209821

PATIENT
  Age: 30 Year
  Sex: Female

DRUGS (3)
  1. HERCEPTIN [Suspect]
     Indication: BREAST CANCER
     Dosage: INTRAVENOUS
     Route: 042
  2. NAVELBINE [Concomitant]
  3. RADIOTHERAPY (RADIATION THERAPY) [Concomitant]

REACTIONS (2)
  - COMA [None]
  - METASTASES TO CENTRAL NERVOUS SYSTEM [None]
